FAERS Safety Report 18935349 (Version 2)
Quarter: 2021Q1

REPORT INFORMATION
  Report Type: Spontaneous
  Country: CA (occurrence: CA)
  Receive Date: 20210224
  Receipt Date: 20210226
  Transmission Date: 20210420
  Serious: Yes (Other)
  Sender: FDA-Public Use
  Company Number: CA-PFIZER INC-2021148019

PATIENT
  Age: 6 Year
  Sex: Female

DRUGS (1)
  1. CRISABOROLE [Suspect]
     Active Substance: CRISABOROLE

REACTIONS (5)
  - Periorbital infection [Unknown]
  - Condition aggravated [Unknown]
  - Application site pain [Unknown]
  - Oral infection [Unknown]
  - Drug hypersensitivity [Unknown]
